FAERS Safety Report 8986732 (Version 13)
Quarter: 2015Q3

REPORT INFORMATION
  Report Type: Report from Study
  Country: CA (occurrence: CA)
  Receive Date: 20121226
  Receipt Date: 20150901
  Transmission Date: 20151125
  Serious: Yes (Other)
  Sender: FDA-Public Use
  Company Number: CA-ROCHE-1171141

PATIENT
  Age: 58 Year
  Sex: Female
  Weight: 58 kg

DRUGS (15)
  1. NORVASC [Concomitant]
     Active Substance: AMLODIPINE BESYLATE
  2. ACTEMRA [Suspect]
     Active Substance: TOCILIZUMAB
     Route: 042
     Dates: start: 20120430
  3. INDOCID [Concomitant]
     Active Substance: INDOMETHACIN
  4. ACTONEL [Concomitant]
     Active Substance: RISEDRONATE SODIUM
  5. ACTEMRA [Suspect]
     Active Substance: TOCILIZUMAB
     Indication: RHEUMATOID ARTHRITIS
     Route: 042
     Dates: start: 20120109
  6. METHOTREXATE [Concomitant]
     Active Substance: METHOTREXATE
  7. ACTEMRA [Suspect]
     Active Substance: TOCILIZUMAB
     Route: 042
     Dates: start: 20150829
  8. VITAMIN C [Concomitant]
     Active Substance: ASCORBIC ACID
  9. OXYCONTIN [Concomitant]
     Active Substance: OXYCODONE HYDROCHLORIDE
  10. ENDOCET [Concomitant]
     Active Substance: ACETAMINOPHEN\OXYCODONE HYDROCHLORIDE
     Route: 065
  11. TYLENOL [Concomitant]
     Active Substance: ACETAMINOPHEN
  12. ALTACE [Concomitant]
     Active Substance: RAMIPRIL
  13. PREDNISONE. [Concomitant]
     Active Substance: PREDNISONE
  14. PANTOLOC [Concomitant]
     Active Substance: PANTOPRAZOLE SODIUM
  15. TRIAZIDE [Concomitant]

REACTIONS (8)
  - Back pain [Not Recovered/Not Resolved]
  - Musculoskeletal disorder [Unknown]
  - Musculoskeletal pain [Not Recovered/Not Resolved]
  - Heart rate decreased [Unknown]
  - Infusion related reaction [Unknown]
  - Blood pressure increased [Unknown]
  - Weight increased [Unknown]
  - Off label use [Unknown]

NARRATIVE: CASE EVENT DATE: 20150428
